FAERS Safety Report 18706240 (Version 1)
Quarter: 2021Q1

REPORT INFORMATION
  Report Type: Spontaneous
  Country: CA (occurrence: CA)
  Receive Date: 20210106
  Receipt Date: 20210106
  Transmission Date: 20210419
  Serious: Yes (Other)
  Sender: FDA-Public Use
  Company Number: CA-ROCHE-2742253

PATIENT
  Sex: Male

DRUGS (1)
  1. AVASTIN [Suspect]
     Active Substance: BEVACIZUMAB
     Indication: DIABETIC RETINAL OEDEMA
     Dosage: DISCONTINUED TREATMENT
     Route: 065

REACTIONS (5)
  - Intentional product use issue [Unknown]
  - Off label use [Unknown]
  - Subretinal fluid [Unknown]
  - Uveitis [Unknown]
  - Intraocular pressure increased [Unknown]
